FAERS Safety Report 6426532-2 (Version None)
Quarter: 2009Q4

REPORT INFORMATION
  Report Type: 
  Country: None (occurrence: None)
  Receive Date: 20091030
  Receipt Date: 20091023
  Transmission Date: 20100525
  Serious: Yes (Death)
  Sender: FDA-Public Use
  Company Number: 2009SP032851

PATIENT

DRUGS (1)
  1. NOXAFIL [Suspect]
     Indication: PROPHYLAXIS

REACTIONS (1)
  - GRAFT VERSUS HOST DISEASE [None]
